FAERS Safety Report 20097484 (Version 1)
Quarter: 2021Q4

REPORT INFORMATION
  Report Type: Spontaneous
  Country: US (occurrence: US)
  Receive Date: 20211122
  Receipt Date: 20211122
  Transmission Date: 20220303
  Serious: Yes (Other)
  Sender: FDA-Public Use
  Company Number: US-ORGANON-O2111USA002250

PATIENT
  Sex: Female

DRUGS (1)
  1. NEXPLANON [Suspect]
     Active Substance: ETONOGESTREL
     Dosage: 1 IMPLANT, ONCE
     Route: 059
     Dates: end: 20211110

REACTIONS (3)
  - Device dislocation [Recovered/Resolved]
  - Incorrect product administration duration [Unknown]
  - No adverse event [Unknown]
